FAERS Safety Report 20475205 (Version 7)
Quarter: 2022Q2

REPORT INFORMATION
  Report Type: Spontaneous
  Country: US (occurrence: US)
  Receive Date: 20220215
  Receipt Date: 20220513
  Transmission Date: 20220720
  Serious: Yes (Other)
  Sender: FDA-Public Use
  Company Number: US-PFIZER INC-202101843982

PATIENT
  Age: 64 Year
  Sex: Female

DRUGS (17)
  1. IBRANCE [Suspect]
     Active Substance: PALBOCICLIB
     Dosage: 125 MG DAILY ON DAYS 1 THROUGH 21 OF EACH 28 DAY CYCLE
     Route: 048
     Dates: start: 20211210, end: 20211222
  2. IBRANCE [Suspect]
     Active Substance: PALBOCICLIB
     Dosage: 100 MG, CYCLIC (EVERY OTHER DAY FOR 21 DAYS ON AND 7 DAYS OFF)
     Route: 048
  3. IBRANCE [Suspect]
     Active Substance: PALBOCICLIB
     Dosage: 100 MG, CYCLIC (DAILY ON DAYS 1 THROUGH 21 OF EACH 28 DAY CYCLE)
     Route: 048
  4. IBRANCE [Suspect]
     Active Substance: PALBOCICLIB
     Dosage: 100 MG, CYCLIC (TAKE 1 TABLET DAILY ON DAYS 1 THROUGH 21 OF EACH 28-DAY CYCLE)
     Route: 048
  5. LACTOSE [Suspect]
     Active Substance: LACTOSE
     Dosage: UNK
  6. ARIMIDEX [Suspect]
     Active Substance: ANASTROZOLE
     Dosage: UNK
  7. ANTIBIOTIC SIMPLEX [Concomitant]
     Dosage: UNK
  8. ASPERCREME HEAT PAIN RELIEVING [Concomitant]
     Dosage: UNK
  9. CALCIUM CARBONATE [Concomitant]
     Active Substance: CALCIUM CARBONATE
     Dosage: UNK
  10. COLACE [Concomitant]
     Active Substance: DOCUSATE SODIUM
     Dosage: UNK
  11. CRANBERRY [Concomitant]
     Active Substance: CRANBERRY
     Dosage: UNK
  12. MOTRIN IB [Concomitant]
     Active Substance: IBUPROFEN
     Dosage: UNK
  13. REFRESH LIQUIGEL [Concomitant]
     Active Substance: CARBOXYMETHYLCELLULOSE SODIUM
     Dosage: UNK
  14. VITAMIN D3 [Concomitant]
     Active Substance: CHOLECALCIFEROL
     Dosage: UNK
  15. ZOFRAN [Concomitant]
     Active Substance: ONDANSETRON HYDROCHLORIDE
     Dosage: UNK
  16. ZOMETA [Concomitant]
     Active Substance: ZOLEDRONIC ACID
     Dosage: UNK
  17. ZYRTEC [Concomitant]
     Active Substance: CETIRIZINE HYDROCHLORIDE
     Dosage: UNK

REACTIONS (15)
  - Neutropenia [Not Recovered/Not Resolved]
  - White blood cell count decreased [Not Recovered/Not Resolved]
  - Stomatitis [Not Recovered/Not Resolved]
  - Oropharyngeal discomfort [Not Recovered/Not Resolved]
  - Oral disorder [Not Recovered/Not Resolved]
  - Chills [Unknown]
  - Hepatic enzyme increased [Recovered/Resolved]
  - Reaction to excipient [Recovered/Resolved]
  - Red blood cell count decreased [Unknown]
  - Haemoglobin decreased [Unknown]
  - Haematocrit decreased [Unknown]
  - Pain [Unknown]
  - Abdominal pain [Not Recovered/Not Resolved]
  - Abdominal distension [Recovering/Resolving]
  - Off label use [Unknown]

NARRATIVE: CASE EVENT DATE: 20211201
